FAERS Safety Report 9331516 (Version 1)
Quarter: 2013Q2

REPORT INFORMATION
  Report Type: Spontaneous
  Country: FR (occurrence: FR)
  Receive Date: 20130605
  Receipt Date: 20130605
  Transmission Date: 20140414
  Serious: Yes (Hospitalization)
  Sender: FDA-Public Use
  Company Number: FR-PFIZER INC-2013165199

PATIENT
  Age: 38 Year
  Sex: Female

DRUGS (4)
  1. STEDIRIL [Suspect]
     Indication: CONTRACEPTION
     Dosage: UNK
     Route: 048
     Dates: start: 1976, end: 1987
  2. MICROVAL [Suspect]
     Indication: CONTRACEPTION
     Dosage: UNK
     Route: 048
     Dates: start: 1987, end: 1989
  3. OXYMETAZOLINE HYDROCHLORIDE [Suspect]
     Indication: NASOPHARYNGITIS
     Dosage: EVERY DAY, SEVERAL INTAKES
     Route: 045
     Dates: start: 1983, end: 1986
  4. OXYMETAZOLINE HYDROCHLORIDE [Suspect]
     Dosage: UNK

REACTIONS (1)
  - Pulmonary arterial hypertension [Not Recovered/Not Resolved]
